FAERS Safety Report 14922680 (Version 1)
Quarter: 2018Q2

REPORT INFORMATION
  Report Type: Spontaneous
  Country: NL (occurrence: NL)
  Receive Date: 20180522
  Receipt Date: 20180522
  Transmission Date: 20180711
  Serious: Yes (Other)
  Sender: FDA-Public Use
  Company Number: NL-TEVA-2018-NL-896100

PATIENT
  Sex: Female
  Weight: 48 kg

DRUGS (2)
  1. LISINOPRIL 10MG [Concomitant]
     Active Substance: LISINOPRIL
     Dates: start: 2014
  2. SERTRALINE TABLET 100MG TABLET, 100 MG (MILLIGRAM) [Suspect]
     Active Substance: SERTRALINE HYDROCHLORIDE
     Indication: DEPRESSED MOOD
     Dosage: 150 MILLIGRAM DAILY;
     Route: 065
     Dates: start: 20170101, end: 20170510

REACTIONS (2)
  - Weight increased [Recovering/Resolving]
  - Galactorrhoea [Recovering/Resolving]
